FAERS Safety Report 7476883-8 (Version None)
Quarter: 2011Q2

REPORT INFORMATION
  Report Type: 
  Country: None (occurrence: None)
  Receive Date: 20110512
  Receipt Date: 20091122
  Transmission Date: 20111010
  Serious: Yes (Death, Other)
  Sender: FDA-Public Use
  Company Number: US-BAYER-200940261NA

PATIENT
  Age: 77 Year
  Sex: Female
  Weight: 54.422 kg

DRUGS (21)
  1. LIPITOR [Concomitant]
  2. MANNITOL [Concomitant]
     Dosage: 100 ML, PUMP PRIME
     Route: 042
     Dates: start: 20070919, end: 20070919
  3. TRASYLOL [Suspect]
     Indication: ENDOSCOPY UPPER GASTROINTESTINAL TRACT
  4. FENTANYL [Concomitant]
     Dosage: UNK
     Dates: start: 20070919, end: 20070919
  5. PAVULON [Concomitant]
     Dosage: UNK
     Dates: start: 20070919, end: 20070919
  6. PANCURONIUM BROMIDE [Concomitant]
     Dosage: UNK
     Dates: start: 20070919, end: 20070919
  7. BICARBONAT [Concomitant]
     Dosage: 50 MEQ, UNK
     Dates: start: 20070919, end: 20070919
  8. CEFUROXIME [Concomitant]
     Dosage: 1.3 G, UNK
     Route: 042
     Dates: start: 20070919, end: 20070919
  9. PHENYLEPHRINE [PHENYLEPHRINE] [Concomitant]
     Dosage: UNK
     Dates: start: 20070919, end: 20070919
  10. EPINEPHRINE [Concomitant]
  11. TRASYLOL [Suspect]
     Indication: CORONARY ARTERY BYPASS
     Dosage: 200 ML LOADING DOSE
     Route: 042
     Dates: start: 20070919, end: 20070919
  12. ACETYLSALICYLIC ACID SRT [Concomitant]
  13. HYDROCHLOROTHIAZIDE [Concomitant]
  14. HEPARIN [Concomitant]
     Dosage: 10000 U, UNK
     Dates: start: 20070919, end: 20070919
  15. VERSED [Concomitant]
     Dosage: UNK
     Dates: start: 20070919, end: 20070919
  16. SUCCINYLCHOLINE CHLORIDE [Concomitant]
     Dosage: UNK
     Dates: start: 20070919, end: 20070919
  17. TRASYLOL [Suspect]
     Indication: AORTIC VALVE REPLACEMENT
     Dosage: 50 ML/HR INFUSION
     Route: 042
     Dates: start: 20070919, end: 20070919
  18. ACTINAL [Concomitant]
  19. CARDIOPLEGIA [Concomitant]
     Dosage: 800 ML, UNK
     Dates: start: 20070919, end: 20070919
  20. LASIX [Concomitant]
     Dosage: UNK
     Dates: start: 20070919, end: 20070919
  21. RED BLOOD CELLS, CONCENTRATED [Concomitant]
     Dosage: 2 U, UNK
     Route: 042
     Dates: start: 20070919, end: 20070919

REACTIONS (13)
  - RENAL FAILURE [None]
  - RENAL IMPAIRMENT [None]
  - PAIN [None]
  - INJURY [None]
  - MULTI-ORGAN FAILURE [None]
  - STRESS [None]
  - RENAL INJURY [None]
  - EMOTIONAL DISTRESS [None]
  - ANXIETY [None]
  - ANHEDONIA [None]
  - UNEVALUABLE EVENT [None]
  - DEATH [None]
  - FEAR [None]
